FAERS Safety Report 5265478-2 (Version None)
Quarter: 2007Q1

REPORT INFORMATION
  Report Type: 
  Country: None (occurrence: None)
  Receive Date: 20061213
  Receipt Date: 20040914
  Transmission Date: 20070707
  Serious: Yes (Other)
  Sender: FDA-Public Use
  Company Number: 2004UW19257

PATIENT
  Age: 62 Year
  Sex: Female
  Weight: 77.1115 kg

DRUGS (10)
  1. IRESSA [Suspect]
     Indication: NON-SMALL CELL LUNG CANCER
     Dosage: 250 MG PO
     Route: 048
  2. TAXOTERE [Concomitant]
  3. CISPLATIN [Concomitant]
  4. PROTONIX [Concomitant]
  5. CELEBREX [Concomitant]
  6. ZOCOR [Concomitant]
  7. ADVAIR DISKUS 100/50 [Concomitant]
  8. VITAMIN [Concomitant]
  9. COMBIVENT [Concomitant]
  10. THEOPHYLLINE [Concomitant]

REACTIONS (4)
  - ANOREXIA [None]
  - HYPOAESTHESIA [None]
  - PARAESTHESIA [None]
  - WEIGHT DECREASED [None]
